FAERS Safety Report 8796694 (Version 1)
Quarter: 2012Q4

REPORT INFORMATION
  Report Type: 
  Country: US (occurrence: US)
  Receive Date: 20120917
  Receipt Date: 20120917
  Transmission Date: 20130627
  Serious: No
  Sender: FDA-Public Use
  Company Number: US-ABBOTT-11P-163-0868294-00

PATIENT
  Age: 61 Year
  Sex: Male

DRUGS (1)
  1. DEPAKOTE SPRINKLE CAPSULES [Suspect]
     Indication: CONVULSION

REACTIONS (2)
  - Off label use [Recovered/Resolved]
  - Feeding tube complication [Recovered/Resolved]
